FAERS Safety Report 10709791 (Version 1)
Quarter: 2015Q1

REPORT INFORMATION
  Report Type: Spontaneous
  Country: US (occurrence: US)
  Receive Date: 20150114
  Receipt Date: 20150114
  Transmission Date: 20150721
  Serious: Yes (Hospitalization, Other)
  Sender: FDA-Public Use
  Company Number: US-GILEAD-2015-0131715

PATIENT
  Age: 75 Year
  Sex: Female

DRUGS (2)
  1. LETAIRIS [Suspect]
     Active Substance: AMBRISENTAN
     Indication: PRODUCT USED FOR UNKNOWN INDICATION
     Dosage: 5 MG, QD
     Route: 065
     Dates: start: 20140729
  2. OXYGEN. [Concomitant]
     Active Substance: OXYGEN

REACTIONS (3)
  - Influenza [Unknown]
  - Diabetes mellitus [Unknown]
  - Drug dose omission [Unknown]
